FAERS Safety Report 8550319-8 (Version None)
Quarter: 2012Q3

REPORT INFORMATION
  Report Type: 
  Country: None (occurrence: None)
  Receive Date: 20120730
  Receipt Date: 20120719
  Transmission Date: 20120928
  Serious: Yes (Hospitalization)
  Sender: FDA-Public Use
  Company Number: US-ASTRAZENECA-2012SE50835

PATIENT
  Age: 32 Year
  Sex: Male
  Weight: 88.5 kg

DRUGS (1)
  1. SEROQUEL XR [Suspect]
     Indication: SLEEP DISORDER
     Route: 048

REACTIONS (3)
  - OFF LABEL USE [None]
  - ACCIDENT [None]
  - HYPERSOMNIA [None]
